FAERS Safety Report 4839848-8 (Version None)
Quarter: 2005Q4

REPORT INFORMATION
  Report Type: 
  Country: None (occurrence: None)
  Receive Date: 20051125
  Receipt Date: 20051114
  Transmission Date: 20060501
  Serious: Yes (Hospitalization)
  Sender: FDA-Public Use
  Company Number: HQWYE545314NOV05

PATIENT
  Age: 63 Year
  Sex: Male

DRUGS (12)
  1. CORDARONE [Suspect]
     Indication: ARRHYTHMIA SUPRAVENTRICULAR
     Dosage: 200 MG 1X PER 1 DAY
     Route: 048
  2. FLUINDIONE (FLUINDIONE) [Suspect]
     Dosage: SEE IMAGE
     Route: 048
     Dates: end: 20050920
  3. FLUINDIONE (FLUINDIONE) [Suspect]
     Dosage: SEE IMAGE
     Route: 048
     Dates: start: 20050921, end: 20050923
  4. FLUINDIONE (FLUINDIONE) [Suspect]
     Dosage: SEE IMAGE
     Route: 048
     Dates: start: 20050925
  5. SOLU-MEDROL [Suspect]
     Indication: DYSPNOEA
     Dosage: 80 MG 1X PER 1 DAY
     Route: 042
     Dates: start: 20050920, end: 20050923
  6. SOLUPRED (PREDNISOLONE SODIUM SULFOBENZOATE) [Suspect]
     Indication: DYSPNOEA
     Dosage: SEE IMAGE
     Route: 048
     Dates: start: 20050923, end: 20050925
  7. SOLUPRED (PREDNISOLONE SODIUM SULFOBENZOATE) [Suspect]
     Indication: DYSPNOEA
     Dosage: SEE IMAGE
     Route: 048
     Dates: start: 20050926, end: 20051001
  8. AMARYL [Concomitant]
  9. TAREG (VALSARTAN) [Concomitant]
  10. FUROSEMIDE [Concomitant]
  11. COMBIVENT [Concomitant]
  12. FORADIL [Concomitant]

REACTIONS (4)
  - ASTHMA [None]
  - DRUG INTERACTION POTENTIATION [None]
  - INTERNATIONAL NORMALISED RATIO INCREASED [None]
  - PROTHROMBIN TIME RATIO DECREASED [None]
